FAERS Safety Report 6504240-7 (Version None)
Quarter: 2009Q4

REPORT INFORMATION
  Report Type: 
  Country: None (occurrence: None)
  Receive Date: 20091215
  Receipt Date: 20091204
  Transmission Date: 20100525
  Serious: Yes (Hospitalization)
  Sender: FDA-Public Use
  Company Number: 2009029450 (0)

PATIENT
  Age: 1 Year
  Sex: Male

DRUGS (3)
  1. ACTIQ [Suspect]
     Indication: URETHRAL REPAIR
  2. DICLOFENAC SODIUM [Suspect]
     Indication: URETHRAL REPAIR
  3. PROPOFOL [Suspect]
     Indication: URETHRAL REPAIR

REACTIONS (1)
  - ANAPHYLACTIC REACTION [None]
